FAERS Safety Report 16391118 (Version 1)
Quarter: 2019Q2

REPORT INFORMATION
  Report Type: Spontaneous
  Country: DE (occurrence: DE)
  Receive Date: 20190604
  Receipt Date: 20190604
  Transmission Date: 20190711
  Serious: Yes (Other)
  Sender: FDA-Public Use
  Company Number: DE-UCBSA-2019022538

PATIENT
  Age: 77 Year
  Sex: Male

DRUGS (8)
  1. NUCALA [Suspect]
     Active Substance: MEPOLIZUMAB
     Indication: PROPHYLAXIS
     Dosage: UNK
  2. LEVETIRACETAM. [Suspect]
     Active Substance: LEVETIRACETAM
     Indication: PRODUCT USED FOR UNKNOWN INDICATION
     Dosage: 2 TABLET, BID, 500 MG
     Dates: start: 20190211
  3. SPIRIVA [Suspect]
     Active Substance: TIOTROPIUM BROMIDE MONOHYDRATE
     Indication: RESPIRATORY DISORDER
     Dosage: 1 CAPSULE, QD, 18 MG
  4. SALBU NOVOLIZER [Suspect]
     Active Substance: ALBUTEROL SULFATE
     Indication: RESPIRATORY DISORDER
     Dosage: UNK
     Route: 055
  5. RELVAR ELLIPTA [Suspect]
     Active Substance: FLUTICASONE FUROATE\VILANTEROL TRIFENATATE
     Indication: RESPIRATORY DISORDER
     Dosage: 1 DOSAGEFORM DAILY; 1 PUFF(S), QD
     Route: 055
  6. AVAMYS [Suspect]
     Active Substance: FLUTICASONE FUROATE
     Indication: RESPIRATORY DISORDER
     Dosage: 2 DOSAGE FORM, ONCE DAILY 2 PUFF(S), QD
     Route: 055
  7. NUCALA [Suspect]
     Active Substance: MEPOLIZUMAB
     Indication: ASTHMA
     Dosage: 100 MILLIGRAM, EV 30 DAYS
     Route: 042
     Dates: start: 20180703
  8. PREDNISOLONE. [Suspect]
     Active Substance: PREDNISOLONE
     Indication: PRODUCT USED FOR UNKNOWN INDICATION
     Dosage: UNK

REACTIONS (2)
  - Epilepsy [Unknown]
  - Glioblastoma [Recovered/Resolved]

NARRATIVE: CASE EVENT DATE: 201902
